FAERS Safety Report 17209437 (Version 1)
Quarter: 2019Q4

REPORT INFORMATION
  Report Type: Spontaneous
  Country: PT (occurrence: PT)
  Receive Date: 20191227
  Receipt Date: 20191227
  Transmission Date: 20200122
  Serious: Yes (Other)
  Sender: FDA-Public Use
  Company Number: PT-HIKMA PHARMACEUTICALS USA INC.-PT-H14001-19-50246

PATIENT
  Age: 50 Year
  Sex: Female

DRUGS (16)
  1. CYTARABINE. [Suspect]
     Active Substance: CYTARABINE
     Indication: CENTRAL NERVOUS SYSTEM LEUKAEMIA
  2. METHOTREXATE. [Suspect]
     Active Substance: METHOTREXATE
     Indication: CENTRAL NERVOUS SYSTEM LEUKAEMIA
     Route: 037
     Dates: start: 201806
  3. METHOTREXATE. [Suspect]
     Active Substance: METHOTREXATE
     Indication: BURKITT^S LEUKAEMIA
  4. CYCLOPHOSPHAMIDE. [Suspect]
     Active Substance: CYCLOPHOSPHAMIDE
     Indication: CENTRAL NERVOUS SYSTEM LEUKAEMIA
     Route: 037
     Dates: start: 201806
  5. LAMIVUDINE. [Concomitant]
     Active Substance: LAMIVUDINE
     Indication: ACQUIRED IMMUNODEFICIENCY SYNDROME
     Route: 065
  6. VINCRISTINE [Suspect]
     Active Substance: VINCRISTINE
     Indication: CENTRAL NERVOUS SYSTEM LEUKAEMIA
  7. CYCLOPHOSPHAMIDE. [Suspect]
     Active Substance: CYCLOPHOSPHAMIDE
     Indication: BURKITT^S LEUKAEMIA
  8. DEXAMETHASONE. [Suspect]
     Active Substance: DEXAMETHASONE
     Indication: BURKITT^S LEUKAEMIA
  9. RITUXIMAB. [Suspect]
     Active Substance: RITUXIMAB
     Indication: BURKITT^S LEUKAEMIA
  10. DOLUTEGRAVIR [Concomitant]
     Active Substance: DOLUTEGRAVIR
     Indication: ACQUIRED IMMUNODEFICIENCY SYNDROME
     Route: 065
  11. DOXORUBICIN [Suspect]
     Active Substance: DOXORUBICIN
     Indication: CENTRAL NERVOUS SYSTEM LEUKAEMIA
     Route: 037
     Dates: start: 201806
  12. DEXAMETHASONE. [Suspect]
     Active Substance: DEXAMETHASONE
     Indication: CENTRAL NERVOUS SYSTEM LEUKAEMIA
     Route: 037
     Dates: start: 201806
  13. ABACAVIR. [Concomitant]
     Active Substance: ABACAVIR
     Indication: ACQUIRED IMMUNODEFICIENCY SYNDROME
     Route: 065
  14. VINCRISTINE [Suspect]
     Active Substance: VINCRISTINE
     Indication: BURKITT^S LEUKAEMIA
     Route: 037
     Dates: start: 201806
  15. RITUXIMAB. [Suspect]
     Active Substance: RITUXIMAB
     Indication: CENTRAL NERVOUS SYSTEM LEUKAEMIA
     Route: 037
     Dates: start: 201806
  16. CYTARABINE. [Suspect]
     Active Substance: CYTARABINE
     Indication: BURKITT^S LEUKAEMIA
     Route: 037
     Dates: start: 201806

REACTIONS (8)
  - Myelopathy [Recovering/Resolving]
  - Back pain [Recovering/Resolving]
  - Spinal cord injury [Recovering/Resolving]
  - Urinary incontinence [Recovering/Resolving]
  - Areflexia [Recovering/Resolving]
  - Hypoaesthesia [Recovering/Resolving]
  - Paraparesis [Recovering/Resolving]
  - Anal incontinence [Recovering/Resolving]

NARRATIVE: CASE EVENT DATE: 201812
